FAERS Safety Report 18953326 (Version 1)
Quarter: 2021Q1

REPORT INFORMATION
  Report Type: Spontaneous
  Country: US (occurrence: US)
  Receive Date: 20210227
  Receipt Date: 20210227
  Transmission Date: 20210420
  Serious: Yes (Hospitalization)
  Sender: FDA-Public Use
  Company Number: None

PATIENT
  Sex: Male
  Weight: 91.63 kg

DRUGS (2)
  1. CARBOPLATIN. [Concomitant]
     Active Substance: CARBOPLATIN
  2. PEMETREXED. [Suspect]
     Active Substance: PEMETREXED

REACTIONS (13)
  - Nephrolithiasis [None]
  - Constipation [None]
  - Renal impairment [None]
  - Diarrhoea [None]
  - Polyuria [None]
  - Hyperglycaemia [None]
  - Flank pain [None]
  - Chromaturia [None]
  - Pollakiuria [None]
  - Blood urine present [None]
  - Polydipsia [None]
  - Fatigue [None]
  - Urethritis noninfective [None]

NARRATIVE: CASE EVENT DATE: 20210223
